FAERS Safety Report 19992200 (Version 1)
Quarter: 2021Q4

REPORT INFORMATION
  Report Type: Spontaneous
  Country: DE (occurrence: DE)
  Receive Date: 20211025
  Receipt Date: 20211025
  Transmission Date: 20220304
  Serious: Yes (Other)
  Sender: FDA-Public Use
  Company Number: DE-NOVARTISPH-NVSC2021DE238768

PATIENT
  Age: 81 Year
  Sex: Male

DRUGS (4)
  1. CARBAMAZEPINE [Suspect]
     Active Substance: CARBAMAZEPINE
     Indication: Product used for unknown indication
     Route: 065
  2. LUTETIUM LU-177 [Concomitant]
     Active Substance: LUTETIUM LU-177
     Indication: Prostate cancer metastatic
     Dosage: SLOW IV INJECTION OVER 30-60 SECONDS
     Route: 042
  3. SALINE [Concomitant]
     Active Substance: SODIUM CHLORIDE
     Indication: Product used for unknown indication
     Dosage: 300 ML, QH
     Route: 041
  4. SALINE [Concomitant]
     Active Substance: SODIUM CHLORIDE
     Dosage: 1000 ML
     Route: 041

REACTIONS (1)
  - Toxicity to various agents [Unknown]
